FAERS Safety Report 4517707-8 (Version None)
Quarter: 2004Q4

REPORT INFORMATION
  Report Type: 
  Country: None (occurrence: None)
  Receive Date: 20041203
  Receipt Date: 20041018
  Transmission Date: 20050328
  Serious: Yes (Death, Hospitalization, Other)
  Sender: FDA-Public Use
  Company Number: PHBS2004BE13944

PATIENT
  Age: 78 Year
  Sex: Male

DRUGS (2)
  1. NEORAL [Suspect]
     Indication: TRANSPLANT
     Route: 048
  2. SANDIMMUNE [Suspect]
     Indication: TRANSPLANT
     Dosage: 50 MG/DAY
     Route: 042

REACTIONS (4)
  - CONDITION AGGRAVATED [None]
  - GENERAL PHYSICAL HEALTH DETERIORATION [None]
  - HYPERURICAEMIA [None]
  - MEDICATION ERROR [None]
